FAERS Safety Report 5856872-7 (Version None)
Quarter: 2008Q3

REPORT INFORMATION
  Report Type: 
  Country: None (occurrence: None)
  Receive Date: 20080825
  Receipt Date: 20080813
  Transmission Date: 20090109
  Serious: Yes (Death, Other)
  Sender: FDA-Public Use
  Company Number: IE-PFIZER INC-2008068293

PATIENT
  Age: 82 Year
  Sex: Female

DRUGS (11)
  1. SULFASALAZINE [Suspect]
     Indication: COLITIS ULCERATIVE
     Route: 048
  2. MEMANTINE HCL [Concomitant]
  3. LANSOPRAZOLE [Concomitant]
  4. CALCICHEW-D3 [Concomitant]
  5. BUPRENORPHINE HCL [Concomitant]
  6. COMBIVENT [Concomitant]
  7. FRUSEMIDE [Concomitant]
  8. LISINOPRIL [Concomitant]
  9. GALFER [Concomitant]
  10. DONEPEZIL HCL [Concomitant]
  11. HYDROCORTISONE [Concomitant]

REACTIONS (6)
  - ASTHENIA [None]
  - DEATH [None]
  - NAUSEA [None]
  - NEUTROPENIA [None]
  - PYREXIA [None]
  - RESPIRATORY DISORDER [None]
